FAERS Safety Report 6438090-7 (Version None)
Quarter: 2009Q4

REPORT INFORMATION
  Report Type: 
  Country: None (occurrence: None)
  Receive Date: 20091112
  Receipt Date: 20091106
  Transmission Date: 20100525
  Serious: Yes (Hospitalization, Other)
  Sender: FDA-Public Use
  Company Number: US-ELI_LILLY_AND_COMPANY-US200911001956

PATIENT
  Sex: Female

DRUGS (15)
  1. HUMALOG MIX 75/25 [Suspect]
     Indication: DIABETES MELLITUS
     Dosage: 60 U, EACH MORNING
  2. HUMALOG MIX 75/25 [Suspect]
     Dosage: 40 U, OTHER
  3. HUMALOG MIX 75/25 [Suspect]
     Dosage: 60 U, EACH MORNING
     Dates: start: 20060101
  4. HUMALOG MIX 75/25 [Suspect]
     Dosage: 40 U, OTHER
     Dates: start: 20060101
  5. COUMADIN [Concomitant]
  6. ASPIRIN [Concomitant]
  7. CRESTOR [Concomitant]
  8. WATER PILLS [Concomitant]
  9. SYNTHROID [Concomitant]
  10. DILTIAZEM [Concomitant]
     Dosage: 90 MG, UNK
  11. FOSAMAX [Concomitant]
     Dosage: UNK, WEEKLY (1/W)
  12. PREDNISONE [Concomitant]
     Indication: DYSPNOEA
  13. OXYGEN [Concomitant]
  14. GLUCOPHAGE [Concomitant]
  15. CORTICOSTEROIDS [Concomitant]

REACTIONS (16)
  - BALANCE DISORDER [None]
  - BLOOD GLUCOSE INCREASED [None]
  - DIZZINESS [None]
  - DRUG DOSE OMISSION [None]
  - DRUG INEFFECTIVE [None]
  - DYSPNOEA [None]
  - FEELING ABNORMAL [None]
  - HEADACHE [None]
  - HEART RATE INCREASED [None]
  - HYPOAESTHESIA [None]
  - HYPOTENSION [None]
  - MALAISE [None]
  - OEDEMA PERIPHERAL [None]
  - PAIN [None]
  - POOR QUALITY DRUG ADMINISTERED [None]
  - THROMBOSIS [None]
